FAERS Safety Report 18682067 (Version 1)
Quarter: 2020Q4

REPORT INFORMATION
  Report Type: Report from Study
  Country: FR (occurrence: FR)
  Receive Date: 20201229
  Receipt Date: 20201229
  Transmission Date: 20210114
  Serious: Yes (Hospitalization)
  Sender: FDA-Public Use
  Company Number: FR-TEVA-2020-FR-1863098

PATIENT
  Age: 40 Year

DRUGS (1)
  1. BUPRENORPHINE. [Suspect]
     Active Substance: BUPRENORPHINE
     Indication: SUICIDE ATTEMPT
     Route: 048

REACTIONS (4)
  - Nervous system disorder [Unknown]
  - Suicide attempt [Unknown]
  - Respiratory depression [Unknown]
  - Toxicity to various agents [Unknown]
